FAERS Safety Report 25659087 (Version 1)
Quarter: 2025Q3

REPORT INFORMATION
  Report Type: Spontaneous
  Country: GB (occurrence: GB)
  Receive Date: 20250808
  Receipt Date: 20250808
  Transmission Date: 20251021
  Serious: Yes (Hospitalization, Other)
  Sender: EMD SERONO INC
  Company Number: GB-Merck Healthcare KGaA-2025039477

PATIENT
  Sex: Male

DRUGS (1)
  1. MAVENCLAD [Suspect]
     Active Substance: CLADRIBINE
     Indication: Multiple sclerosis
     Dosage: YEAR ONE WEEK ONE THERAPY
     Dates: start: 20250702

REACTIONS (3)
  - Urinary retention [Unknown]
  - Biopsy bone marrow [Unknown]
  - Post procedural complication [Unknown]
